FAERS Safety Report 8244930-1 (Version None)
Quarter: 2012Q1

REPORT INFORMATION
  Report Type: 
  Country: None (occurrence: None)
  Receive Date: 20120329
  Receipt Date: 20110919
  Transmission Date: 20120608
  Serious: No
  Sender: FDA-Public Use
  Company Number: US-MYLANLABS-2011S1019816

PATIENT
  Age: 53 Year

DRUGS (8)
  1. GEODON [Concomitant]
  2. PROZAC [Concomitant]
  3. FENTANYL-100 [Suspect]
     Dosage: CHANGED Q72H
     Route: 062
     Dates: start: 20110801
  4. JALYN [Concomitant]
  5. FENTANYL-100 [Suspect]
     Indication: PAIN
     Dosage: CHANGED Q72H
     Route: 062
     Dates: start: 20110801
  6. GLEEVEC [Concomitant]
  7. DEPAKOTE [Concomitant]
  8. PRAVASTATIN [Concomitant]

REACTIONS (3)
  - DRUG EFFECT DECREASED [None]
  - PAIN [None]
  - DRUG WITHDRAWAL SYNDROME [None]
